FAERS Safety Report 4588654-0 (Version None)
Quarter: 2005Q1

REPORT INFORMATION
  Report Type: 
  Country: None (occurrence: None)
  Receive Date: 20050222
  Receipt Date: 20050127
  Transmission Date: 20050727
  Serious: Yes (Hospitalization, Other)
  Sender: FDA-Public Use
  Company Number: US-MERCK-0501USA04560

PATIENT
  Age: 56 Year
  Sex: Male
  Weight: 98 kg

DRUGS (10)
  1. ZETIA [Suspect]
     Indication: HYPERCHOLESTEROLAEMIA
     Route: 048
     Dates: start: 20041216, end: 20050117
  2. ZETIA [Suspect]
     Indication: DYSLIPIDAEMIA
     Route: 048
     Dates: start: 20041216, end: 20050117
  3. HYZAAR [Concomitant]
     Route: 048
  4. SYNTHROID [Concomitant]
     Route: 065
  5. ZOCOR [Suspect]
     Indication: HYPERCHOLESTEROLAEMIA
     Route: 048
     Dates: end: 20050117
  6. ZOCOR [Suspect]
     Indication: DYSLIPIDAEMIA
     Route: 048
     Dates: end: 20050117
  7. TRICOR [Concomitant]
     Route: 065
     Dates: end: 20050117
  8. OMEGA-3 MARINE TRIGLYCERIDES [Concomitant]
     Route: 065
  9. VITAMINS (UNSPECIFIED) [Concomitant]
     Route: 065
  10. COZAAR [Concomitant]
     Route: 048

REACTIONS (5)
  - CARDIAC FAILURE CONGESTIVE [None]
  - HYPERGLYCAEMIA [None]
  - ILEUS [None]
  - PANCREATITIS ACUTE [None]
  - PNEUMONIA [None]
